FAERS Safety Report 8503584-7 (Version None)
Quarter: 2012Q3

REPORT INFORMATION
  Report Type: 
  Country: None (occurrence: None)
  Receive Date: 20120711
  Receipt Date: 20070226
  Transmission Date: 20120928
  Serious: Yes (Death)
  Sender: FDA-Public Use
  Company Number: CO-PFIZER INC-2012165249

PATIENT
  Age: 74 Year
  Sex: Male

DRUGS (3)
  1. ACETYLSALICYLIC ACID [Concomitant]
     Dosage: 100 MG, 1X/DAY
     Route: 048
  2. QUINAPRIL HCL [Suspect]
     Dosage: [QUINAPRIL HCL 20]/[HYDROCHLOROTHIAZIDE 12.5 MG], 1X/DAY
     Route: 048
  3. LIPITOR [Suspect]
     Dosage: 10 MG, 1X/DAY
     Route: 048

REACTIONS (2)
  - DYSPNOEA [None]
  - DEATH [None]
